FAERS Safety Report 9627062 (Version 2)
Quarter: 2014Q2

REPORT INFORMATION
  Report Type: Report from Study
  Country: US (occurrence: US)
  Receive Date: 20131016
  Receipt Date: 20140623
  Transmission Date: 20141212
  Serious: Yes (Other)
  Sender: FDA-Public Use
  Company Number: US-CELGENEUS-163-21880-13102553

PATIENT
  Age: 80 Year
  Sex: 0
  Weight: 76.18 kg

DRUGS (1)
  1. REVLIMID [Suspect]
     Indication: PLASMA CELL MYELOMA
     Dosage: 15 MILLIGRAM
     Route: 048
     Dates: start: 20110929

REACTIONS (3)
  - Atelectasis [Unknown]
  - Tracheomalacia [Unknown]
  - Dyspnoea [Unknown]
